FAERS Safety Report 16406287 (Version 1)
Quarter: 2019Q2

REPORT INFORMATION
  Report Type: Spontaneous
  Country: PT (occurrence: PT)
  Receive Date: 20190607
  Receipt Date: 20190607
  Transmission Date: 20190711
  Serious: Yes (Other)
  Sender: FDA-Public Use
  Company Number: PT-PFIZER INC-2019028512

PATIENT
  Age: 67 Year
  Sex: Female

DRUGS (2)
  1. AMIODARONE HCL [Suspect]
     Active Substance: AMIODARONE HYDROCHLORIDE
     Indication: ISCHAEMIC STROKE
     Dosage: UNK
     Route: 065
  2. AMIODARONE HCL [Suspect]
     Active Substance: AMIODARONE HYDROCHLORIDE
     Indication: ATRIAL FIBRILLATION

REACTIONS (6)
  - Rash morbilliform [Recovered/Resolved]
  - Lip oedema [Unknown]
  - Toxic skin eruption [Recovered/Resolved]
  - Toxicity to various agents [Unknown]
  - Rash maculo-papular [Unknown]
  - Eyelid oedema [Unknown]
